FAERS Safety Report 4723710-5 (Version None)
Quarter: 2005Q3

REPORT INFORMATION
  Report Type: 
  Country: None (occurrence: None)
  Receive Date: 20050720
  Receipt Date: 20050720
  Transmission Date: 20060218
  Serious: Yes (Hospitalization)
  Sender: FDA-Public Use
  Company Number: None

PATIENT
  Age: 74 Year
  Sex: Male
  Weight: 78.9259 kg

DRUGS (4)
  1. PAROXETINE [Suspect]
     Dosage: 30 MG PO BID
     Route: 048
  2. BUPROPION [Suspect]
     Dosage: 150 MG Q AM  2 TSP Q4HR PRN
  3. GUAIFENESIN [Suspect]
  4. DEXTROMETHORPHAN HYDROBROMIDE [Suspect]

REACTIONS (5)
  - ABNORMAL BEHAVIOUR [None]
  - AGGRESSION [None]
  - HALLUCINATIONS, MIXED [None]
  - PSYCHOTIC DISORDER [None]
  - SEROTONIN SYNDROME [None]
